FAERS Safety Report 7632326-2 (Version None)
Quarter: 2011Q3

REPORT INFORMATION
  Report Type: 
  Country: None (occurrence: None)
  Receive Date: 20110725
  Receipt Date: 20100730
  Transmission Date: 20111222
  Serious: Yes (Other)
  Sender: FDA-Public Use
  Company Number: US-BRISTOL-MYERS SQUIBB COMPANY-15218035

PATIENT
  Age: 62 Year
  Sex: Female

DRUGS (3)
  1. COUMADIN [Suspect]
  2. SIMVASTATIN [Concomitant]
  3. ATENOLOL [Concomitant]

REACTIONS (2)
  - RECTAL HAEMORRHAGE [None]
  - TOOTH INFECTION [None]
